FAERS Safety Report 17791718 (Version 2)
Quarter: 2020Q2

REPORT INFORMATION
  Report Type: Spontaneous
  Country: GB (occurrence: GB)
  Receive Date: 20200515
  Receipt Date: 20200521
  Transmission Date: 20200714
  Serious: Yes (Death, Hospitalization)
  Sender: FDA-Public Use
  Company Number: GB-ACCORD-181582

PATIENT
  Age: 60 Year
  Sex: Male
  Weight: 72.6 kg

DRUGS (12)
  1. BENDAMUSTINE/BENDAMUSTINE HYDROCHLORIDE [Suspect]
     Active Substance: BENDAMUSTINE HYDROCHLORIDE
     Indication: B-CELL LYMPHOMA
     Route: 042
     Dates: start: 20200312, end: 20200313
  2. MACROGOL 3350 [Concomitant]
     Active Substance: POLYETHYLENE GLYCOL 3350
     Indication: CONSTIPATION
     Dates: start: 20200316, end: 20200407
  3. BECLOMETASONE [Concomitant]
     Active Substance: BECLOMETHASONE DIPROPIONATE
     Indication: WHEEZING
     Dates: start: 20200129, end: 20200407
  4. SALBUTAMOL [Concomitant]
     Active Substance: ALBUTEROL
     Indication: DYSPNOEA
     Dates: start: 20200213, end: 20200407
  5. OMEPRAZOLE. [Concomitant]
     Active Substance: OMEPRAZOLE
     Indication: DYSPEPSIA
     Dates: start: 20200313, end: 20200407
  6. IRON [Concomitant]
     Active Substance: IRON
     Indication: IRON DEFICIENCY
     Dates: start: 20200129, end: 20200407
  7. DOCUSATE/DOCUSATE CALCIUM/DOCUSATE POTASSIUM/DOCUSATE SODIUM [Concomitant]
     Active Substance: DOCUSATE
     Indication: CONSTIPATION
     Dates: start: 20200316, end: 20200407
  8. METFORMIN [Concomitant]
     Active Substance: METFORMIN HYDROCHLORIDE
     Indication: DIABETES MELLITUS
     Dates: start: 20200316, end: 20200407
  9. FORMOTEROL [Concomitant]
     Active Substance: FORMOTEROL
     Indication: WHEEZING
     Dates: start: 20200129, end: 20200407
  10. RITUXIMAB. [Suspect]
     Active Substance: RITUXIMAB
     Indication: B-CELL LYMPHOMA
     Route: 042
     Dates: start: 20200312, end: 20200313
  11. NICOTINE. [Concomitant]
     Active Substance: NICOTINE
     Indication: SMOKING CESSATION THERAPY
     Dates: start: 20200316, end: 20200407
  12. FUROSEMIDE. [Concomitant]
     Active Substance: FUROSEMIDE
     Indication: FLUID OVERLOAD
     Dates: start: 20200316, end: 20200407

REACTIONS (6)
  - Chills [Unknown]
  - Hypoxia [Not Recovered/Not Resolved]
  - COVID-19 [Fatal]
  - Pneumonia [Fatal]
  - Pleural effusion [Recovered/Resolved]
  - Dyspnoea [Not Recovered/Not Resolved]

NARRATIVE: CASE EVENT DATE: 20200403
